FAERS Safety Report 8645062 (Version 4)
Quarter: 2012Q4

REPORT INFORMATION
  Report Type: Report from Study
  Country: US (occurrence: US)
  Receive Date: 20120702
  Receipt Date: 20121005
  Transmission Date: 20130627
  Serious: Yes (Hospitalization, Disabling)
  Sender: FDA-Public Use
  Company Number: US-JNJFOC-20120612622

PATIENT
  Age: 81 Year
  Sex: Male
  Weight: 92.08 kg

DRUGS (22)
  1. ZYTIGA [Suspect]
     Indication: MULTIPLE MYELOMA
     Route: 048
     Dates: start: 20120101, end: 20120530
  2. ZYTIGA [Suspect]
     Indication: MULTIPLE MYELOMA
     Route: 048
     Dates: start: 20111229, end: 201201
  3. ZYTIGA [Suspect]
     Indication: MULTIPLE MYELOMA
     Route: 048
     Dates: start: 20120329, end: 20120621
  4. ZYTIGA [Suspect]
     Indication: MULTIPLE MYELOMA
     Route: 048
     Dates: start: 20120530, end: 20120613
  5. ZYTIGA [Suspect]
     Indication: PROSTATE CANCER METASTATIC
     Route: 048
     Dates: start: 20111229, end: 201201
  6. ZYTIGA [Suspect]
     Indication: PROSTATE CANCER METASTATIC
     Route: 048
     Dates: start: 20120101, end: 20120530
  7. ZYTIGA [Suspect]
     Indication: PROSTATE CANCER METASTATIC
     Route: 048
     Dates: start: 20120329, end: 20120621
  8. ZYTIGA [Suspect]
     Indication: PROSTATE CANCER METASTATIC
     Route: 048
     Dates: start: 20120530, end: 20120613
  9. METOPROLOL TARTRATE [Concomitant]
     Route: 065
  10. INSULIN 70/30 [Concomitant]
     Indication: TYPE 2 DIABETES MELLITUS
     Route: 058
     Dates: start: 2010
  11. PREDNISONE [Concomitant]
     Indication: MULTIPLE MYELOMA
     Route: 048
     Dates: start: 20111229, end: 201201
  12. PREDNISONE [Concomitant]
     Indication: MULTIPLE MYELOMA
     Route: 048
     Dates: start: 20120101, end: 20120530
  13. PREDNISONE [Concomitant]
     Indication: MULTIPLE MYELOMA
     Route: 048
     Dates: start: 20120530, end: 20120613
  14. PREDNISONE [Concomitant]
     Indication: MULTIPLE MYELOMA
     Route: 048
     Dates: start: 20120329
  15. PREDNISONE [Concomitant]
     Indication: PROSTATE CANCER METASTATIC
     Route: 048
     Dates: start: 20111229, end: 201201
  16. PREDNISONE [Concomitant]
     Indication: PROSTATE CANCER METASTATIC
     Route: 048
     Dates: start: 20120101, end: 20120530
  17. PREDNISONE [Concomitant]
     Indication: PROSTATE CANCER METASTATIC
     Route: 048
     Dates: start: 20120530, end: 20120613
  18. PREDNISONE [Concomitant]
     Indication: PROSTATE CANCER METASTATIC
     Route: 048
     Dates: start: 20120329
  19. AMLODIPINE BESILATE [Concomitant]
     Route: 065
  20. SIMVASTATIN [Concomitant]
     Route: 065
  21. ENALAPRIL [Concomitant]
     Route: 065
  22. AREDIA [Concomitant]
     Indication: METASTASES TO BONE
     Route: 065
     Dates: start: 20110602

REACTIONS (15)
  - Gait disturbance [Not Recovered/Not Resolved]
  - Chest pain [Not Recovered/Not Resolved]
  - Dyspnoea [Not Recovered/Not Resolved]
  - Pain in extremity [Not Recovered/Not Resolved]
  - Chest discomfort [Recovered/Resolved]
  - Weight increased [Not Recovered/Not Resolved]
  - Flatulence [Not Recovered/Not Resolved]
  - Hot flush [Not Recovered/Not Resolved]
  - Hyperhidrosis [Not Recovered/Not Resolved]
  - Joint swelling [Recovered/Resolved]
  - Nausea [Not Recovered/Not Resolved]
  - Sinus operation [Not Recovered/Not Resolved]
  - Retching [Not Recovered/Not Resolved]
  - Insomnia [Not Recovered/Not Resolved]
  - Cancer pain [Recovered/Resolved]
